FAERS Safety Report 15461072 (Version 1)
Quarter: 2018Q4

REPORT INFORMATION
  Report Type: Spontaneous
  Country: IN (occurrence: IN)
  Receive Date: 20181003
  Receipt Date: 20181003
  Transmission Date: 20190204
  Serious: Yes (Other)
  Sender: FDA-Public Use
  Company Number: IN-MYLANLABS-2018M1070427

PATIENT
  Age: 49 Year
  Sex: Female

DRUGS (1)
  1. METHOTREXATE. [Suspect]
     Active Substance: METHOTREXATE
     Indication: OCULAR LYMPHOMA
     Dosage: WEEKLY; IN BOTH EYES
     Route: 050

REACTIONS (4)
  - Eye inflammation [Recovered/Resolved]
  - Corneal disorder [Recovered/Resolved]
  - Limbal stem cell deficiency [Recovered/Resolved]
  - Corneal opacity [Recovered/Resolved]
